FAERS Safety Report 18505397 (Version 1)
Quarter: 2020Q4

REPORT INFORMATION
  Report Type: Spontaneous
  Country: US (occurrence: US)
  Receive Date: 20201116
  Receipt Date: 20201116
  Transmission Date: 20210114
  Serious: No
  Sender: FDA-Public Use
  Company Number: US-HIKMA PHARMACEUTICALS USA INC.-US-H14001-20-03039

PATIENT
  Sex: Female

DRUGS (5)
  1. NORTHSTAR METOPROLOL SUCCINATE [Concomitant]
     Dosage: ONE HALF TABLET
     Route: 048
     Dates: start: 20200224, end: 20200528
  2. NORTHSTAR METOPROLOL SUCCINATE [Concomitant]
     Route: 048
     Dates: start: 20200528
  3. ALPRAZOLAM. [Suspect]
     Active Substance: ALPRAZOLAM
     Indication: PRODUCT USED FOR UNKNOWN INDICATION
     Route: 065
  4. XARELTO [Concomitant]
     Active Substance: RIVAROXABAN
     Indication: PRODUCT USED FOR UNKNOWN INDICATION
     Route: 065
     Dates: start: 2017
  5. ACTAVIS ALPRAZOLAM [Concomitant]
     Active Substance: ALPRAZOLAM
     Indication: PRODUCT USED FOR UNKNOWN INDICATION
     Route: 065

REACTIONS (1)
  - Malaise [Unknown]
